FAERS Safety Report 10700237 (Version 2)
Quarter: 2015Q1

REPORT INFORMATION
  Report Type: Spontaneous
  Country: US (occurrence: None)
  Receive Date: 20150107
  Receipt Date: 20150223
  Transmission Date: 20150721
  Serious: Yes (Other)
  Sender: FDA-Public Use
  Company Number: ADR-2015-00015

PATIENT
  Age: 20 Year
  Sex: Female

DRUGS (2)
  1. BACLOFEN INTRATHECAL 2000 MCG/ML (CANGENE) [Suspect]
     Active Substance: BACLOFEN
     Indication: BRAIN INJURY
  2. BACLOFEN INTRATHECAL 2000 MCG/ML (CANGENE) [Suspect]
     Active Substance: BACLOFEN
     Indication: HEAD INJURY

REACTIONS (3)
  - Drug withdrawal syndrome [None]
  - Feeling abnormal [None]
  - Dyskinesia [None]
